FAERS Safety Report 7953707-3 (Version None)
Quarter: 2011Q4

REPORT INFORMATION
  Report Type: 
  Country: None (occurrence: None)
  Receive Date: 20111202
  Receipt Date: 20111122
  Transmission Date: 20120403
  Serious: No
  Sender: FDA-Public Use
  Company Number: US-JNJFOC-20111111025

PATIENT
  Sex: Female
  Weight: 90.72 kg

DRUGS (9)
  1. DURAGESIC-100 [Suspect]
     Indication: BACK PAIN
     Route: 062
     Dates: start: 20100101
  2. METOPROLOL [Concomitant]
     Indication: HEART RATE
     Route: 048
     Dates: start: 20040101
  3. NORVASC [Concomitant]
     Indication: BLOOD PRESSURE
     Route: 048
     Dates: start: 20040101
  4. INSULIN [Concomitant]
     Indication: DIABETES MELLITUS
     Route: 058
     Dates: start: 19860101
  5. LOVASTATIN [Concomitant]
     Indication: BLOOD CHOLESTEROL
     Route: 048
  6. DURAGESIC-100 [Suspect]
     Route: 062
     Dates: start: 20090101, end: 20100101
  7. DURAGESIC-100 [Suspect]
     Indication: FIBROMYALGIA
     Route: 062
     Dates: start: 20100101
  8. DURAGESIC-100 [Suspect]
     Route: 062
     Dates: start: 20090101, end: 20100101
  9. LISINOPRIL [Concomitant]
     Indication: BLOOD PRESSURE
     Route: 048
     Dates: start: 20040101

REACTIONS (9)
  - INAPPROPRIATE SCHEDULE OF DRUG ADMINISTRATION [None]
  - VOMITING [None]
  - DRUG INEFFECTIVE [None]
  - TREATMENT NONCOMPLIANCE [None]
  - DRUG TOLERANCE [None]
  - FEELING ABNORMAL [None]
  - WITHDRAWAL SYNDROME [None]
  - NAUSEA [None]
  - MALAISE [None]
